FAERS Safety Report 9603366 (Version 1)
Quarter: 2013Q4

REPORT INFORMATION
  Report Type: Spontaneous
  Country: JP (occurrence: JP)
  Receive Date: 20131007
  Receipt Date: 20131007
  Transmission Date: 20140711
  Serious: Yes (Other)
  Sender: FDA-Public Use
  Company Number: JP-PFIZER INC-2013281204

PATIENT
  Age: 2 Month
  Sex: Male

DRUGS (1)
  1. REVATIO [Suspect]
     Indication: PULMONARY HYPERTENSION
     Dosage: 4 MG, 3X/DAY
     Route: 048
     Dates: start: 201308

REACTIONS (2)
  - Leukoplakia [Unknown]
  - Off label use [Unknown]
